FAERS Safety Report 6451496-5 (Version None)
Quarter: 2009Q4

REPORT INFORMATION
  Report Type: 
  Country: None (occurrence: None)
  Receive Date: 20091123
  Receipt Date: 20090805
  Transmission Date: 20100525
  Serious: No
  Sender: FDA-Public Use
  Company Number: US-BRISTOL-MYERS SQUIBB COMPANY-14695365

PATIENT
  Age: 55 Year
  Sex: Female

DRUGS (2)
  1. AVALIDE [Suspect]
     Indication: HYPERTENSION
     Dosage: 1 DF = 300MG/12.5MG STARTED 1 YEAR AGO
  2. COREG [Concomitant]

REACTIONS (1)
  - BLOOD PRESSURE INCREASED [None]
